FAERS Safety Report 7955589-2 (Version None)
Quarter: 2011Q4

REPORT INFORMATION
  Report Type: 
  Country: None (occurrence: None)
  Receive Date: 20111202
  Receipt Date: 20111123
  Transmission Date: 20120403
  Serious: Yes (Hospitalization)
  Sender: FDA-Public Use
  Company Number: FR-ASTRAZENECA-2011SE71541

PATIENT
  Age: 79 Year
  Sex: Male

DRUGS (3)
  1. RIFADIN [Suspect]
     Route: 042
     Dates: start: 20110914, end: 20110924
  2. OFLOXACIN [Suspect]
     Route: 048
     Dates: start: 20110914, end: 20110924
  3. CRESTOR [Suspect]
     Route: 048
     Dates: end: 20110924

REACTIONS (4)
  - RASH MACULO-PAPULAR [None]
  - JAUNDICE [None]
  - PRURITUS [None]
  - BLOOD BILIRUBIN INCREASED [None]
